FAERS Safety Report 18174069 (Version 2)
Quarter: 2020Q3

REPORT INFORMATION
  Report Type: Other
  Country: AU (occurrence: AU)
  Receive Date: 20200820
  Receipt Date: 20200820
  Transmission Date: 20201103
  Serious: Yes (Other)
  Sender: FDA-Public Use
  Company Number: AU-MERZ PHARMACEUTICALS GMBH-20-02834

PATIENT
  Age: 34 Year
  Sex: Female

DRUGS (1)
  1. BOTULINUM TOXIN TYPE A [Suspect]
     Active Substance: BOTULINUM TOXIN TYPE A
     Indication: BRUXISM
     Route: 030

REACTIONS (3)
  - Injection site infection [Recovered/Resolved]
  - Off label use [Unknown]
  - Mycobacterial infection [Recovered/Resolved]
